FAERS Safety Report 7943791-5 (Version None)
Quarter: 2011Q4

REPORT INFORMATION
  Report Type: 
  Country: None (occurrence: None)
  Receive Date: 20111128
  Receipt Date: 20111118
  Transmission Date: 20120403
  Serious: Yes (Hospitalization, Other)
  Sender: FDA-Public Use
  Company Number: US-ROCHE-792830

PATIENT
  Sex: Male
  Weight: 57.658 kg

DRUGS (1)
  1. ACCUTANE [Suspect]
     Indication: PRODUCT USED FOR UNKNOWN INDICATION
     Route: 065
     Dates: start: 19910101, end: 19931231

REACTIONS (7)
  - CROHN'S DISEASE [None]
  - COLITIS ULCERATIVE [None]
  - DEEP VEIN THROMBOSIS [None]
  - ADJUSTMENT DISORDER [None]
  - ERECTILE DYSFUNCTION [None]
  - INFLAMMATORY BOWEL DISEASE [None]
  - INTESTINAL HAEMORRHAGE [None]
